FAERS Safety Report 12926209 (Version 1)
Quarter: 2016Q4

REPORT INFORMATION
  Report Type: Spontaneous
  Country: US (occurrence: US)
  Receive Date: 20161109
  Receipt Date: 20161109
  Transmission Date: 20170207
  Serious: No
  Sender: FDA-Public Use
  Company Number: US-BRISTOL-MYERS SQUIBB COMPANY-BMS-2016-087935

PATIENT
  Sex: Male

DRUGS (1)
  1. YERVOY [Suspect]
     Active Substance: IPILIMUMAB
     Indication: MALIGNANT MELANOMA
     Route: 042

REACTIONS (24)
  - Muscular weakness [Unknown]
  - Dizziness [Unknown]
  - Hypoaesthesia [Recovered/Resolved]
  - Faeces hard [Unknown]
  - Depression [Unknown]
  - Dysgeusia [Unknown]
  - Balance disorder [Unknown]
  - Dyspnoea [Unknown]
  - Laceration [Unknown]
  - Flatulence [Unknown]
  - Rash [Recovered/Resolved]
  - Pruritus [Recovered/Resolved]
  - Oxygen saturation decreased [Unknown]
  - Urticaria [Unknown]
  - Abdominal pain upper [Recovered/Resolved]
  - Memory impairment [Unknown]
  - Diarrhoea [Recovered/Resolved]
  - Abdominal pain [Unknown]
  - Anxiety [Unknown]
  - Scar [Unknown]
  - Vision blurred [Recovered/Resolved]
  - Confusional state [Recovered/Resolved]
  - Nausea [Recovered/Resolved]
  - Eye disorder [Unknown]
